FAERS Safety Report 5690554-X (Version None)
Quarter: 2008Q2

REPORT INFORMATION
  Report Type: 
  Country: None (occurrence: None)
  Receive Date: 20080401
  Receipt Date: 20080324
  Transmission Date: 20081010
  Serious: Yes (Death)
  Sender: FDA-Public Use
  Company Number: PK-AVENTIS-200812351GDDC

PATIENT
  Age: 22 Year
  Sex: Female

DRUGS (1)
  1. FLAGYL [Suspect]
     Indication: PROPHYLAXIS
     Route: 042
     Dates: start: 20080311, end: 20080311

REACTIONS (4)
  - ANAPHYLACTIC SHOCK [None]
  - CHILLS [None]
  - RESPIRATORY ARREST [None]
  - VOMITING [None]
